FAERS Safety Report 8829219 (Version 2)
Quarter: 2012Q4

REPORT INFORMATION
  Report Type: Report from Study
  Country: FR (occurrence: FR)
  Receive Date: 20121008
  Receipt Date: 20121119
  Transmission Date: 20130627
  Serious: Yes (Death, Hospitalization)
  Sender: FDA-Public Use
  Company Number: FR-ROCHE-1141678

PATIENT
  Age: 81 Year
  Sex: Female

DRUGS (8)
  1. RANIBIZUMAB [Suspect]
     Indication: AGE-RELATED MACULAR DEGENERATION
     Route: 050
     Dates: start: 20080212
  2. RANIBIZUMAB [Suspect]
     Route: 050
     Dates: start: 20080909
  3. RANIBIZUMAB [Suspect]
     Route: 050
     Dates: start: 20090113
  4. RANIBIZUMAB [Suspect]
     Route: 050
     Dates: start: 20100112
  5. RANIBIZUMAB [Suspect]
     Route: 050
     Dates: start: 20100712
  6. RANIBIZUMAB [Suspect]
     Route: 050
     Dates: start: 20101214
  7. RANIBIZUMAB [Suspect]
     Route: 050
     Dates: start: 20110920
  8. VERTEPORFIN [Suspect]
     Indication: AGE-RELATED MACULAR DEGENERATION
     Route: 050

REACTIONS (1)
  - Death [Fatal]
